FAERS Safety Report 23767431 (Version 2)
Quarter: 2024Q2

REPORT INFORMATION
  Report Type: Spontaneous
  Country: US (occurrence: US)
  Receive Date: 20240422
  Receipt Date: 20240509
  Transmission Date: 20240715
  Serious: No
  Sender: FDA-Public Use
  Company Number: US-ALCON LABORATORIES-ALC2023US002731

PATIENT
  Age: 75 Year
  Sex: Female

DRUGS (2)
  1. ROCKLATAN [Suspect]
     Active Substance: LATANOPROST\NETARSUDIL MESYLATE
     Indication: Intraocular pressure test
     Dosage: 1 DRP EACH EYE ONCE IN NIGHT EVERYDAY
     Route: 047
  2. TIMOLOL [Suspect]
     Active Substance: TIMOLOL
     Indication: Intraocular pressure test
     Dosage: 1 DRP EACH EYE ONCE IN NIGHT EVERYDAY
     Route: 047

REACTIONS (3)
  - Condition aggravated [Recovered/Resolved]
  - Vision blurred [Recovered/Resolved]
  - Lacrimation increased [Recovered/Resolved]

NARRATIVE: CASE EVENT DATE: 20230301
